FAERS Safety Report 5825841-5 (Version None)
Quarter: 2008Q3

REPORT INFORMATION
  Report Type: 
  Country: None (occurrence: None)
  Receive Date: 20080729
  Receipt Date: 20080130
  Transmission Date: 20090109
  Serious: No
  Sender: FDA-Public Use
  Company Number: US-BAUSCH-2008BL000397

PATIENT
  Age: 70 Year
  Sex: Female

DRUGS (13)
  1. CROMOLYN SODIUM [Suspect]
     Indication: RHINORRHOEA
     Route: 045
     Dates: start: 20080128
  2. GLYBURIDE [Concomitant]
     Indication: DIABETES MELLITUS
  3. QUINARETIC [Concomitant]
     Indication: HYPERTENSION
  4. LEVOBUNOLOL HCL [Concomitant]
     Indication: GLAUCOMA
  5. VITAMIN C WITH BIOFLAVINOIDS [Concomitant]
     Indication: VITAMIN SUPPLEMENTATION
  6. COENZYME Q10 [Concomitant]
     Indication: VITAMIN SUPPLEMENTATION
  7. GLUCOSAMINE [Concomitant]
  8. CALCIUM [Concomitant]
  9. ZINC [Concomitant]
  10. BIOTIN [Concomitant]
  11. MULTI-VITAMINS [Concomitant]
     Indication: VITAMIN SUPPLEMENTATION
  12. LORATADINE [Concomitant]
  13. PSEUDOEPHEDRINE HCL [Concomitant]

REACTIONS (2)
  - DYSGEUSIA [None]
  - SINUSITIS [None]
